FAERS Safety Report 4546531-5 (Version None)
Quarter: 2005Q1

REPORT INFORMATION
  Report Type: 
  Country: None (occurrence: None)
  Receive Date: 20050106
  Receipt Date: 20041229
  Transmission Date: 20050727
  Serious: Yes (Other)
  Sender: FDA-Public Use
  Company Number: NZ-GLAXOSMITHKLINE-B0363458A

PATIENT
  Age: 25 Year
  Sex: Male

DRUGS (1)
  1. DUTASTERIDE [Suspect]
     Indication: DRUG USE FOR UNKNOWN INDICATION
     Route: 065

REACTIONS (4)
  - BLOOD CHOLESTEROL INCREASED [None]
  - HIGH DENSITY LIPOPROTEIN INCREASED [None]
  - LIVER FUNCTION TEST ABNORMAL [None]
  - LOW DENSITY LIPOPROTEIN INCREASED [None]
